FAERS Safety Report 6133164-2 (Version None)
Quarter: 2009Q1

REPORT INFORMATION
  Report Type: 
  Country: None (occurrence: None)
  Receive Date: 20090325
  Receipt Date: 20090325
  Transmission Date: 20090719
  Serious: Yes (Other)
  Sender: FDA-Public Use
  Company Number: None

PATIENT
  Age: 11 Year
  Sex: Female
  Weight: 36.2878 kg

DRUGS (1)
  1. SEPTRA [Suspect]
     Indication: INFECTION
     Dates: start: 20081112, end: 20081120

REACTIONS (1)
  - PLATELET COUNT DECREASED [None]
